FAERS Safety Report 20675024 (Version 1)
Quarter: 2022Q2

REPORT INFORMATION
  Report Type: Spontaneous
  Country: US (occurrence: None)
  Receive Date: 20220404
  Receipt Date: 20220404
  Transmission Date: 20220721
  Serious: No
  Sender: FDA-Public Use
  Company Number: None

PATIENT
  Age: 59 Year
  Sex: Female
  Weight: 87.3 kg

DRUGS (6)
  1. BYDUREON BCISE [Suspect]
     Active Substance: EXENATIDE
     Indication: Diabetes mellitus
     Dosage: OTHER QUANTITY : 1 INJECTION(S);?OTHER FREQUENCY : ONCE A WEEK;?OTHER ROUTE : INJECTION IN MUSCLE;?
     Route: 050
     Dates: start: 20220403, end: 20220403
  2. DEVICE [Concomitant]
     Active Substance: DEVICE
  3. GLIPIZIDE [Concomitant]
     Active Substance: GLIPIZIDE
  4. TRAMADOL [Concomitant]
     Active Substance: TRAMADOL
  5. GABAPENTIN [Concomitant]
     Active Substance: GABAPENTIN
  6. OLMESARTAN MEDOXOMIL [Concomitant]
     Active Substance: OLMESARTAN MEDOXOMIL

REACTIONS (3)
  - Somnolence [None]
  - Blood glucose increased [None]
  - Pain [None]

NARRATIVE: CASE EVENT DATE: 20220404
